FAERS Safety Report 15916535 (Version 1)
Quarter: 2019Q1

REPORT INFORMATION
  Report Type: Spontaneous
  Country: IT (occurrence: IT)
  Receive Date: 20190204
  Receipt Date: 20190204
  Transmission Date: 20190417
  Serious: Yes (Disabling)
  Sender: FDA-Public Use
  Company Number: IT-TEVA-2019-IT-1006953

PATIENT
  Age: 71 Year
  Sex: Female

DRUGS (6)
  1. IDRACAL 1000 MG COMPRESSE EFFERVESCENTI [Concomitant]
     Route: 048
  2. LOSARTAN POTASSICO/IDROCLOROTIAZIDE [Concomitant]
     Active Substance: HYDROCHLOROTHIAZIDE\LOSARTAN POTASSIUM
     Route: 048
  3. COLECALCIFEROLO EG 10.000 U.I. /ML GOCCE ORALI, SOLUZIONE [Concomitant]
     Route: 048
  4. PACLITAXEL. [Suspect]
     Active Substance: PACLITAXEL
     Indication: BREAST CANCER
     Dates: start: 20180525, end: 20180720
  5. MYCOSTATIN 100.000 U.I./ML SOSPENSIONE ORALE [Concomitant]
     Route: 048
  6. BISOPROLOL FUMARATE. [Concomitant]
     Active Substance: BISOPROLOL FUMARATE
     Route: 048

REACTIONS (1)
  - Paralysis [Not Recovered/Not Resolved]

NARRATIVE: CASE EVENT DATE: 20180803
